FAERS Safety Report 5501072-3 (Version None)
Quarter: 2007Q4

REPORT INFORMATION
  Report Type: 
  Country: None (occurrence: None)
  Receive Date: 20071029
  Receipt Date: 20071017
  Transmission Date: 20080405
  Serious: Yes (Other)
  Sender: FDA-Public Use
  Company Number: FI-PFIZER INC-2007088081

PATIENT
  Sex: Female

DRUGS (4)
  1. LYRICA [Suspect]
     Dosage: DAILY DOSE:225MG
  2. VENLAFAXIINE HCL [Interacting]
     Dosage: DAILY DOSE:75MG
  3. TRAMADOL HCL [Concomitant]
  4. YASMIN [Concomitant]

REACTIONS (17)
  - ANXIETY [None]
  - CONDITION AGGRAVATED [None]
  - DIARRHOEA [None]
  - DRUG INTERACTION [None]
  - DRUG WITHDRAWAL SYNDROME [None]
  - FEELING COLD [None]
  - FEELING HOT [None]
  - HALLUCINATION [None]
  - HYPERHIDROSIS [None]
  - INSOMNIA [None]
  - MIGRAINE [None]
  - PALPITATIONS [None]
  - PANIC REACTION [None]
  - PSYCHOMOTOR HYPERACTIVITY [None]
  - SENSORY DISTURBANCE [None]
  - VOMITING [None]
  - WEIGHT DECREASED [None]
